FAERS Safety Report 4743346-X (Version None)
Quarter: 2005Q3

REPORT INFORMATION
  Report Type: 
  Country: None (occurrence: None)
  Receive Date: 20050809
  Receipt Date: 20050728
  Transmission Date: 20060218
  Serious: No
  Sender: FDA-Public Use
  Company Number: 05H-163-0301292-00

PATIENT
  Sex: 0

DRUGS (4)
  1. FENTANYL CITRATE [Suspect]
     Indication: ANALGESIC EFFECT
  2. FENTANYL CITRATE [Suspect]
     Indication: SEDATION
  3. KETAMINE HCL [Suspect]
     Indication: ANALGESIC EFFECT
  4. KETAMINE HCL [Suspect]
     Indication: SEDATION

REACTIONS (1)
  - GRAND MAL CONVULSION [None]
